FAERS Safety Report 12169026 (Version 1)
Quarter: 2016Q1

REPORT INFORMATION
  Report Type: Other
  Country: GB (occurrence: GB)
  Receive Date: 20160310
  Receipt Date: 20160310
  Transmission Date: 20160526
  Serious: Yes (Other)
  Sender: FDA-Public Use
  Company Number: GB-MYLANLABS-2016M1009590

PATIENT

DRUGS (2)
  1. FLUOXETINE [Concomitant]
     Active Substance: FLUOXETINE HYDROCHLORIDE
     Dosage: UNK
  2. FENTANYL. [Suspect]
     Active Substance: FENTANYL
     Dosage: UNK
     Route: 062

REACTIONS (7)
  - Abnormal loss of weight [Unknown]
  - Nightmare [Unknown]
  - Depressed mood [Unknown]
  - Pain [Unknown]
  - Suicidal ideation [Unknown]
  - Pruritus [Unknown]
  - Feelings of worthlessness [Unknown]
